FAERS Safety Report 4735024-8 (Version None)
Quarter: 2005Q3

REPORT INFORMATION
  Report Type: 
  Country: None (occurrence: None)
  Receive Date: 20050804
  Receipt Date: 20050309
  Transmission Date: 20060218
  Serious: Yes (Other)
  Sender: FDA-Public Use
  Company Number: JP-GILEAD-2005-0008133

PATIENT
  Sex: Male

DRUGS (2)
  1. HEPSERA [Suspect]
     Indication: HEPATITIS B
     Route: 048
     Dates: start: 20050204
  2. ZEFFIX [Suspect]
     Indication: HEPATITIS B
     Route: 048

REACTIONS (2)
  - JAUNDICE [None]
  - PYREXIA [None]
